FAERS Safety Report 13560135 (Version 2)
Quarter: 2017Q3

REPORT INFORMATION
  Report Type: Spontaneous
  Country: US (occurrence: US)
  Receive Date: 20170518
  Receipt Date: 20170726
  Transmission Date: 20171127
  Serious: Yes (Hospitalization)
  Sender: FDA-Public Use
  Company Number: US-PFIZER INC-2017214460

PATIENT
  Age: 66 Year
  Sex: Female

DRUGS (25)
  1. TACROLIMUS. [Concomitant]
     Active Substance: TACROLIMUS
     Dosage: 1 MG, 1X/DAY(IN THE MORNING)
     Route: 048
  2. VITAMIN D2 [Concomitant]
     Active Substance: ERGOCALCIFEROL
     Dosage: 50000 IU, WEEKLY
     Route: 048
  3. DUONEB [Concomitant]
     Active Substance: ALBUTEROL SULFATE\IPRATROPIUM BROMIDE
     Indication: ASTHMA
     Dosage: 3 ML, 1X/DAY [0.5 MG-3MG (2.5 MG BASE)/3 ML NEBULIZER SOLUTION]
  4. CALCIUM +D3 [Concomitant]
     Active Substance: CALCIUM\CHOLECALCIFEROL
     Dosage: 1 DF, DAILY [(CALCIUM 500 WITH D) 500 MG (1250 MG) 400 UNIT]
     Route: 048
  5. NORVASC [Concomitant]
     Active Substance: AMLODIPINE BESYLATE
     Dosage: 5 MG, DAILY
     Route: 048
  6. PEPCID [Concomitant]
     Active Substance: FAMOTIDINE
     Dosage: 20 MG, 2X/DAY
     Route: 048
  7. SYNTHROID [Concomitant]
     Active Substance: LEVOTHYROXINE SODIUM
     Dosage: 50 UG, DAILY (DAILY ON EMPTY STOMACH)
     Route: 048
  8. SINGULAIR [Concomitant]
     Active Substance: MONTELUKAST SODIUM
     Dosage: 10 MG, 1X/DAY(IN THE EVENING)
     Route: 048
  9. DELTASONE [Concomitant]
     Active Substance: PREDNISONE
     Dosage: 5 MG, ALTERNATE DAY (EVERY OTHER DAY)
     Route: 048
  10. AMOXIL [Concomitant]
     Active Substance: AMOXICILLIN
     Dosage: 500 MG, 4X/DAY(TAKE 4 CAPSULE BY MOUTH ONE HOUR BEFORE PROCEDURE FOR 1 DOSE)
     Route: 048
  11. VFEND [Suspect]
     Active Substance: VORICONAZOLE
     Indication: TRANSPLANT
     Dosage: 200 MG, DAILY
     Route: 048
     Dates: start: 201311
  12. VFEND [Suspect]
     Active Substance: VORICONAZOLE
     Dosage: 200 MG, 1X/DAY, IN THE MORNING
     Route: 048
     Dates: end: 20170430
  13. PROGRAF [Concomitant]
     Active Substance: TACROLIMUS\TACROLIMUS ANHYDROUS
     Dosage: 0.5 MG, 1X/DAY(AT BED TIME)
     Route: 048
  14. FOSAMAX [Concomitant]
     Active Substance: ALENDRONATE SODIUM
     Dosage: 70 MG, WEEKLY(BY MOUTH EVERY SUNDAY. MUST TAKE 1/2 HR BEFORE BREAKFAST WITH WATER AND REMAIN UPRIGHT
     Route: 048
  15. COMPAZINE [Concomitant]
     Active Substance: PROCHLORPERAZINE MALEATE
     Indication: NAUSEA
     Dosage: 10 MG, AS NEEDED (TAKE 1 TAB (10 MG TOTAL) BY MOUTH EVERY 6 HOURS AS NEEDED FOR NAUSEA OR VOMITING)
     Route: 048
  16. COMPAZINE [Concomitant]
     Active Substance: PROCHLORPERAZINE MALEATE
     Indication: VOMITING
  17. DUONEB [Concomitant]
     Active Substance: ALBUTEROL SULFATE\IPRATROPIUM BROMIDE
     Indication: ACUTE MYELOID LEUKAEMIA
  18. DUONEB [Concomitant]
     Active Substance: ALBUTEROL SULFATE\IPRATROPIUM BROMIDE
     Indication: BONE MARROW TRANSPLANT
  19. SEPTRA DS [Concomitant]
     Active Substance: SULFAMETHOXAZOLE\TRIMETHOPRIM
     Dosage: UNK [800-160 MG ORAL TABLET: TAKE 1 TAB BY MOUTH TWICE DAILY ON SATURDAYS AND SUNDAYS ONLY]
     Route: 048
  20. ZOVIRAX [Concomitant]
     Active Substance: ACYCLOVIR
     Dosage: 400 MG, 2X/DAY
     Route: 048
  21. ECOTRIN 650 [Concomitant]
     Dosage: 81 MG, DAILY
     Route: 048
  22. RESTASIS [Concomitant]
     Active Substance: CYCLOSPORINE
     Dosage: 1 GTT, 1X/DAY [AT BEDTIME]
     Route: 047
  23. BACTRIM DS [Concomitant]
     Active Substance: SULFAMETHOXAZOLE\TRIMETHOPRIM
  24. FLAXSEED [Concomitant]
     Active Substance: FLAX SEED
     Dosage: 500 MG, 2X/DAY
  25. ZITHROMAX [Concomitant]
     Active Substance: AZITHROMYCIN DIHYDRATE
     Dosage: 250 MG, UNK(TAKE 1 TAB EVERY MONDAY, WEDNESDAY AND FRIDAY)
     Route: 048

REACTIONS (5)
  - Dyspnoea [Recovered/Resolved]
  - Weight increased [Unknown]
  - Swelling [Unknown]
  - Weight fluctuation [Unknown]
  - Product use in unapproved indication [Unknown]

NARRATIVE: CASE EVENT DATE: 201311
